FAERS Safety Report 4335064-7 (Version None)
Quarter: 2004Q2

REPORT INFORMATION
  Report Type: 
  Country: None (occurrence: None)
  Receive Date: 20040408
  Receipt Date: 20040405
  Transmission Date: 20050107
  Serious: Yes (Other)
  Sender: FDA-Public Use
  Company Number: FR-GLAXOSMITHKLINE-B0329087A

PATIENT
  Age: 40 Year
  Sex: Female

DRUGS (2)
  1. AMOXICILLIN [Suspect]
     Dosage: 2G PER DAY
     Route: 048
     Dates: start: 20040303, end: 20040317
  2. VIOXX [Suspect]
     Route: 048
     Dates: start: 20040101, end: 20040101

REACTIONS (2)
  - ACTIVATED PARTIAL THROMBOPLASTIN TIME PROLONGED [None]
  - NEUTROPENIA [None]
